FAERS Safety Report 4675543-6 (Version None)
Quarter: 2005Q2

REPORT INFORMATION
  Report Type: 
  Country: None (occurrence: None)
  Receive Date: 20050525
  Receipt Date: 20050519
  Transmission Date: 20051028
  Serious: No
  Sender: FDA-Public Use
  Company Number: B0381167A

PATIENT
  Sex: 0

DRUGS (1)
  1. ALBENDAZOLE [Suspect]

REACTIONS (1)
  - URTICARIA [None]
